FAERS Safety Report 4989596-9 (Version None)
Quarter: 2006Q2

REPORT INFORMATION
  Report Type: 
  Country: None (occurrence: None)
  Receive Date: 20060502
  Receipt Date: 20051025
  Transmission Date: 20061013
  Serious: Yes (Hospitalization)
  Sender: FDA-Public Use
  Company Number: US-MERCK-0510USA09278

PATIENT
  Age: 58 Year
  Sex: Male
  Weight: 93 kg

DRUGS (5)
  1. VIOXX [Suspect]
     Indication: BACK PAIN
     Route: 048
     Dates: start: 20010101, end: 20040101
  2. VIOXX [Suspect]
     Route: 048
     Dates: start: 20010101, end: 20040101
  3. HYZAAR [Concomitant]
     Route: 065
  4. ADALAT [Concomitant]
     Route: 065
  5. GLUCOTROL [Concomitant]
     Route: 065

REACTIONS (13)
  - ANKLE FRACTURE [None]
  - CAROTID ARTERY OCCLUSION [None]
  - CEREBROVASCULAR ACCIDENT [None]
  - CERVICAL VERTEBRAL FRACTURE [None]
  - CHEST PAIN [None]
  - CHRONIC OBSTRUCTIVE PULMONARY DISEASE [None]
  - CORONARY ARTERY DISEASE [None]
  - DEPRESSION [None]
  - DYSPNOEA [None]
  - GASTROOESOPHAGEAL REFLUX DISEASE [None]
  - POST PROCEDURAL COMPLICATION [None]
  - SLEEP APNOEA SYNDROME [None]
  - VISION BLURRED [None]
